FAERS Safety Report 23437966 (Version 4)
Quarter: 2024Q1

REPORT INFORMATION
  Report Type: Spontaneous
  Country: GR (occurrence: GR)
  Receive Date: 20240124
  Receipt Date: 20240228
  Transmission Date: 20240409
  Serious: No
  Sender: FDA-Public Use
  Company Number: GR-PFIZER INC-PV202400001087

PATIENT
  Age: 14 Year
  Sex: Male
  Weight: 49 kg

DRUGS (1)
  1. GENOTROPIN [Suspect]
     Active Substance: SOMATROPIN
     Indication: Body height decreased
     Dosage: 10 MG WEEKLY (6 DAYS WITH 1 DAY OFF)
     Route: 058
     Dates: start: 20231228

REACTIONS (5)
  - Wrong technique in device usage process [Unknown]
  - Device leakage [Unknown]
  - Product label issue [Unknown]
  - Device delivery system issue [Unknown]
  - Device physical property issue [Unknown]

NARRATIVE: CASE EVENT DATE: 20231228
